FAERS Safety Report 4934583-X (Version None)
Quarter: 2006Q1

REPORT INFORMATION
  Report Type: 
  Country: None (occurrence: None)
  Receive Date: 20060307
  Receipt Date: 20050315
  Transmission Date: 20060701
  Serious: Yes (Disabling, Other)
  Sender: FDA-Public Use
  Company Number: US-MERCK-0503USA03204

PATIENT
  Sex: Female
  Weight: 73 kg

DRUGS (4)
  1. INSULIN [Concomitant]
     Route: 065
  2. GLUCOPHAGE [Concomitant]
     Route: 065
  3. VIOXX [Suspect]
     Indication: PAIN
     Route: 048
  4. CELEBREX [Concomitant]
     Route: 065

REACTIONS (19)
  - ARTERIAL OCCLUSIVE DISEASE [None]
  - ARTHRITIS [None]
  - ATRIAL FIBRILLATION [None]
  - CARDIAC FAILURE [None]
  - CARDIOVASCULAR DISORDER [None]
  - CEREBROVASCULAR ACCIDENT [None]
  - CHEST PAIN [None]
  - CHRONIC OBSTRUCTIVE PULMONARY DISEASE [None]
  - CORONARY ARTERY DISEASE [None]
  - DYSPNOEA [None]
  - FIBROMYALGIA [None]
  - HEART RATE IRREGULAR [None]
  - HEPATOCELLULAR DAMAGE [None]
  - MYOCARDIAL INFARCTION [None]
  - OSTEOARTHRITIS [None]
  - PALPITATIONS [None]
  - RENAL DISORDER [None]
  - THROMBOSIS [None]
  - ULCER [None]
